FAERS Safety Report 6584123-7 (Version None)
Quarter: 2010Q1

REPORT INFORMATION
  Report Type: 
  Country: None (occurrence: None)
  Receive Date: 20100216
  Receipt Date: 20100209
  Transmission Date: 20100710
  Serious: Yes (Hospitalization, Other)
  Sender: FDA-Public Use
  Company Number: US-JNJFOC-20090805147

PATIENT
  Sex: Female
  Weight: 42 kg

DRUGS (13)
  1. CISAPRIDE [Suspect]
     Route: 048
  2. CISAPRIDE [Suspect]
     Indication: GASTROOESOPHAGEAL REFLUX DISEASE
     Route: 048
  3. CISAPRIDE [Suspect]
     Route: 048
  4. CISAPRIDE [Suspect]
     Route: 048
  5. CALCIUM CITRATE [Concomitant]
     Indication: OSTEOPOROSIS
     Route: 048
  6. MULTI-VITAMINS [Concomitant]
     Indication: MEDICAL DIET
     Route: 048
  7. BISACODYL [Concomitant]
     Indication: CONSTIPATION
  8. VALIUM [Concomitant]
     Indication: EPILEPSY
     Route: 054
  9. BECONASE AQ [Concomitant]
     Indication: RHINITIS ALLERGIC
  10. PROTONIX [Concomitant]
     Indication: GASTROOESOPHAGEAL REFLUX DISEASE
     Route: 048
  11. MIRALAX [Concomitant]
     Indication: CONSTIPATION
     Route: 048
  12. CYPROHEPTADINE [Concomitant]
     Indication: DECREASED APPETITE
     Route: 048
  13. TRANXENE [Concomitant]
     Indication: EPILEPSY
     Route: 048

REACTIONS (1)
  - ELECTROCARDIOGRAM QT PROLONGED [None]
